FAERS Safety Report 15767834 (Version 3)
Quarter: 2021Q4

REPORT INFORMATION
  Report Type: Report from Study
  Country: US (occurrence: US)
  Receive Date: 20181227
  Receipt Date: 20211011
  Transmission Date: 20220303
  Serious: Yes (Hospitalization, Other)
  Sender: FDA-Public Use
  Company Number: US-JAZZ-2018-US-018308

PATIENT
  Sex: Female

DRUGS (48)
  1. XYREM [Suspect]
     Active Substance: SODIUM OXYBATE
     Indication: Narcolepsy
     Dosage: 2.25 G, BID
     Route: 048
     Dates: start: 201011, end: 201012
  2. XYREM [Suspect]
     Active Substance: SODIUM OXYBATE
     Indication: Cataplexy
     Dosage: DOSE ADJUSTMENT
     Route: 048
     Dates: start: 201012, end: 201012
  3. XYREM [Suspect]
     Active Substance: SODIUM OXYBATE
     Dosage: 4.5 G, BID
     Route: 048
     Dates: start: 201012
  4. LEVOTHYROXINE [Concomitant]
     Active Substance: LEVOTHYROXINE
  5. AUBAGIO [Concomitant]
     Active Substance: TERIFLUNOMIDE
  6. ZOLOFT [Concomitant]
     Active Substance: SERTRALINE HYDROCHLORIDE
  7. HORIZANT [Concomitant]
     Active Substance: GABAPENTIN ENACARBIL
  8. FOLIC ACID [Concomitant]
     Active Substance: FOLIC ACID
  9. METHOTREXATE [Concomitant]
     Active Substance: METHOTREXATE
  10. ACYCLOVIR [Concomitant]
     Active Substance: ACYCLOVIR
  11. ADDERALL [Concomitant]
     Active Substance: AMPHETAMINE ASPARTATE\AMPHETAMINE SULFATE\DEXTROAMPHETAMINE SACCHARATE\DEXTROAMPHETAMINE SULFATE
  12. BACLOFEN [Concomitant]
     Active Substance: BACLOFEN
  13. CALCIUM\VITAMIN D [Concomitant]
     Active Substance: CALCIUM\VITAMIN D
  14. EFFEXOR [Concomitant]
     Active Substance: VENLAFAXINE HYDROCHLORIDE
  15. ESTRADIOL [Concomitant]
     Active Substance: ESTRADIOL
  16. NORETHINDRONE [Concomitant]
     Active Substance: NORETHINDRONE
  17. SULINDAC [Concomitant]
     Active Substance: SULINDAC
  18. TOPROL XL [Concomitant]
     Active Substance: METOPROLOL SUCCINATE
  19. FAMCICLOVIR [Concomitant]
     Active Substance: FAMCICLOVIR
  20. GABAPENTIN [Concomitant]
     Active Substance: GABAPENTIN
  21. ADVAIR HFA [Concomitant]
     Active Substance: FLUTICASONE PROPIONATE\SALMETEROL XINAFOATE
  22. ARAVA [Concomitant]
     Active Substance: LEFLUNOMIDE
  23. CARBAMAZEPINE [Concomitant]
     Active Substance: CARBAMAZEPINE
  24. PRASTERONE [Concomitant]
     Active Substance: PRASTERONE
  25. ENTOCORT [Concomitant]
     Active Substance: BUDESONIDE
  26. METHENAMINE [Concomitant]
     Active Substance: METHENAMINE
  27. PENTASA [Concomitant]
     Active Substance: MESALAMINE
  28. SYNTHROID [Concomitant]
     Active Substance: LEVOTHYROXINE SODIUM
  29. XOLAIR [Concomitant]
     Active Substance: OMALIZUMAB
  30. XOPENEX HFA [Concomitant]
     Active Substance: LEVALBUTEROL TARTRATE
  31. OXYCODONE HYDROCHLORIDE [Concomitant]
     Active Substance: OXYCODONE HYDROCHLORIDE
  32. CALCIUM ASCORBATE [Concomitant]
     Active Substance: CALCIUM ASCORBATE
  33. CLONAZEPAM [Concomitant]
     Active Substance: CLONAZEPAM
  34. FISH OIL [Concomitant]
     Active Substance: FISH OIL
  35. HYDROCHLOROTHIAZIDE [Concomitant]
     Active Substance: HYDROCHLOROTHIAZIDE
  36. MAGNESIUM [Concomitant]
     Active Substance: MAGNESIUM
  37. ONDANSETRON [Concomitant]
     Active Substance: ONDANSETRON
  38. CYMBALTA [Concomitant]
     Active Substance: DULOXETINE HYDROCHLORIDE
  39. DEXEDRINE [Concomitant]
     Active Substance: DEXTROAMPHETAMINE SULFATE
  40. HYDROCODONE BITARTRATE AND ACETAMINOPHEN [Concomitant]
     Active Substance: ACETAMINOPHEN\HYDROCODONE BITARTRATE
  41. METHYLPHENIDATE [Concomitant]
     Active Substance: METHYLPHENIDATE
  42. PANTOPRAZOLE SODIUM [Concomitant]
     Active Substance: PANTOPRAZOLE SODIUM
  43. MODAFINIL [Concomitant]
     Active Substance: MODAFINIL
  44. REBIF [Concomitant]
     Active Substance: INTERFERON BETA-1A
  45. RITALIN [Concomitant]
     Active Substance: METHYLPHENIDATE HYDROCHLORIDE
  46. SINGULAIR [Concomitant]
     Active Substance: MONTELUKAST SODIUM
  47. STADOL [Concomitant]
     Active Substance: BUTORPHANOL TARTRATE
  48. ERGOCALCIFEROL [Concomitant]
     Active Substance: ERGOCALCIFEROL

REACTIONS (2)
  - Pericarditis [Unknown]
  - Anaemia [Unknown]
